FAERS Safety Report 7735249-3 (Version None)
Quarter: 2011Q3

REPORT INFORMATION
  Report Type: 
  Country: None (occurrence: None)
  Receive Date: 20110907
  Receipt Date: 20110831
  Transmission Date: 20111222
  Serious: Yes (Hospitalization, Disabling, Other)
  Sender: FDA-Public Use
  Company Number: US-SANOFI-AVENTIS-2011SA030835

PATIENT
  Age: 85 Year
  Sex: Female
  Weight: 43 kg

DRUGS (6)
  1. AUGMENTIN '125' [Concomitant]
  2. LANTUS [Suspect]
     Indication: TYPE 2 DIABETES MELLITUS
     Dosage: DOSE:6 UNIT(S)
     Route: 058
     Dates: start: 20110504, end: 20110611
  3. SOLOSTAR [Suspect]
     Indication: TYPE 2 DIABETES MELLITUS
     Dates: start: 20110504, end: 20110611
  4. INSULIN [Suspect]
     Route: 065
  5. NAPROSYN [Concomitant]
  6. LEVAQUIN [Concomitant]

REACTIONS (14)
  - DYSPNOEA [None]
  - IMPAIRED DRIVING ABILITY [None]
  - MALAISE [None]
  - HEADACHE [None]
  - GASTRIC DISORDER [None]
  - BLOOD GLUCOSE INCREASED [None]
  - SOMNOLENCE [None]
  - ASTHENIA [None]
  - MUSCLE SPASMS [None]
  - PNEUMONIA [None]
  - BEDRIDDEN [None]
  - NERVOUSNESS [None]
  - WEIGHT DECREASED [None]
  - DYSGRAPHIA [None]
